FAERS Safety Report 6906635-6 (Version None)
Quarter: 2010Q3

REPORT INFORMATION
  Report Type: 
  Country: None (occurrence: None)
  Receive Date: 20100804
  Receipt Date: 20100727
  Transmission Date: 20110219
  Serious: Yes (Life-Threatening)
  Sender: FDA-Public Use
  Company Number: FR-JNJFOC-20100704928

PATIENT
  Sex: Male

DRUGS (7)
  1. ALFENTANIL [Suspect]
     Indication: INDUCTION OF ANAESTHESIA
     Dosage: 1500 MG 1 IN 1 DAY
     Route: 042
     Dates: start: 20100618, end: 20100618
  2. ETOMIDATE [Suspect]
     Indication: INDUCTION OF ANAESTHESIA
     Dosage: 40 UG 1 IN 1 DAY
     Route: 042
     Dates: start: 20100618, end: 20100618
  3. TRAMADOL HCL [Suspect]
     Indication: PRODUCT USED FOR UNKNOWN INDICATION
     Dosage: 1 PER 1 DAY
     Route: 042
     Dates: start: 20100618, end: 20100618
  4. TRACRIUM [Suspect]
     Indication: INDUCTION OF ANAESTHESIA
     Route: 042
     Dates: start: 20100618, end: 20100618
  5. SUCCINYLCHOLINE CHLORIDE [Suspect]
     Indication: INDUCTION OF ANAESTHESIA
     Route: 042
     Dates: start: 20100618, end: 20100618
  6. CEFAMANDOLE SODIUM [Suspect]
     Indication: ANTIBIOTIC PROPHYLAXIS
     Route: 042
     Dates: start: 20100618, end: 20100618
  7. PERFALGAN [Concomitant]
     Indication: PRODUCT USED FOR UNKNOWN INDICATION
     Route: 042
     Dates: start: 20100618, end: 20100618

REACTIONS (3)
  - AIRWAY COMPLICATION OF ANAESTHESIA [None]
  - OXYGEN SATURATION DECREASED [None]
  - URTICARIA [None]
